FAERS Safety Report 18145125 (Version 16)
Quarter: 2023Q4

REPORT INFORMATION
  Report Type: Spontaneous
  Country: US (occurrence: US)
  Receive Date: 20200813
  Receipt Date: 20231128
  Transmission Date: 20240110
  Serious: Yes (Other)
  Sender: FDA-Public Use
  Company Number: US-PFIZER INC-2020306498

PATIENT
  Age: 74 Year
  Sex: Female
  Weight: 60.317 kg

DRUGS (6)
  1. IBRANCE [Suspect]
     Active Substance: PALBOCICLIB
     Indication: Breast cancer female
     Dosage: UNK
     Dates: start: 20190411
  2. IBRANCE [Suspect]
     Active Substance: PALBOCICLIB
     Dosage: ONCE DAILY ON DAYS 1-14 WITH 14 DAYS OFF, WITH OR WITHOUT FOOD, EVERY 28 DAY CYCLE
     Route: 048
     Dates: start: 20200529
  3. IBRANCE [Suspect]
     Active Substance: PALBOCICLIB
     Dosage: TAKE 1 TAB ONCE DAILY WITH OR WITHOUT FOOD FOR 21 DAYS, FOLLOWED BY 7 DAYS OFF, EVERY 28 DAYS
     Route: 048
  4. IBRANCE [Suspect]
     Active Substance: PALBOCICLIB
     Dosage: 75 MG, CYCLIC (3 WEEKS ON, 1 WEEK OFF)
     Route: 048
  5. IBRANCE [Suspect]
     Active Substance: PALBOCICLIB
     Dosage: 75 MG, CYCLIC [ONCE DAILY ON DAYS 1-14 WITH 14 DAYS OFF, REPEATED EVERY 28 DAY CYCLE]
     Route: 048
  6. LETROZOLE [Suspect]
     Active Substance: LETROZOLE
     Dosage: UNK
     Dates: start: 20190411

REACTIONS (13)
  - Agranulocytosis [Unknown]
  - Chronic kidney disease [Unknown]
  - Off label use [Unknown]
  - Product use issue [Unknown]
  - Intentional product misuse [Unknown]
  - Chromaturia [Unknown]
  - Dizziness [Unknown]
  - Illness [Unknown]
  - Dry eye [Unknown]
  - Lacrimation increased [Unknown]
  - Anaemia macrocytic [Unknown]
  - Tumour marker increased [Unknown]
  - Muscular weakness [Unknown]

NARRATIVE: CASE EVENT DATE: 20200101
